FAERS Safety Report 7594105-4 (Version None)
Quarter: 2011Q3

REPORT INFORMATION
  Report Type: 
  Country: None (occurrence: None)
  Receive Date: 20110706
  Receipt Date: 20110630
  Transmission Date: 20111222
  Serious: Yes (Other)
  Sender: FDA-Public Use
  Company Number: BR-ABBOTT-11P-020-0719583-00

PATIENT
  Sex: Female

DRUGS (9)
  1. ALENDRONATE SODIUM [Concomitant]
     Indication: MINERAL SUPPLEMENTATION
     Route: 048
  2. HUMIRA [Suspect]
     Indication: RHEUMATOID ARTHRITIS
     Route: 058
     Dates: start: 20091013, end: 20110201
  3. ASPIRIN [Concomitant]
     Indication: PRODUCT USED FOR UNKNOWN INDICATION
     Route: 048
  4. SODIUM CITRATE, VITAMIN (FORMULA) [Concomitant]
     Indication: BONE DISORDER
     Dosage: FORM STRENGTH: 500MG, 200 IU
     Route: 048
  5. PREDNISONE, FAMOTIDINE, FLUOXETINE, ACETAMINOPHEN (FORMULA) [Concomitant]
     Indication: RHEUMATOID ARTHRITIS
     Dosage: FORM STRENGTH: 5MG, 40MG, 45MG, 400MG
     Route: 048
  6. METHOTREXATE [Concomitant]
     Indication: RHEUMATOID ARTHRITIS
     Route: 048
  7. HUMIRA [Suspect]
     Dates: start: 20110501
  8. ENALAPRIL MALEATE [Concomitant]
     Indication: HYPERTENSION
     Route: 048
  9. FOLIC ACID, RANITIDINE, NORTPTUNA (?) (FORMULA) [Concomitant]
     Indication: RHEUMATOID ARTHRITIS
     Dosage: FORM STRENGTH: 5MG, 300MG, 30 MG
     Route: 048

REACTIONS (2)
  - ASTHENIA [None]
  - COLON CANCER [None]
